FAERS Safety Report 16891467 (Version 1)
Quarter: 2019Q4

REPORT INFORMATION
  Report Type: Spontaneous
  Country: US (occurrence: US)
  Receive Date: 20191007
  Receipt Date: 20191007
  Transmission Date: 20200122
  Serious: No
  Sender: FDA-Public Use
  Company Number: US-ELI_LILLY_AND_COMPANY-US201910003210

PATIENT
  Sex: Male

DRUGS (1)
  1. HUMALOG MIX75/25 [Suspect]
     Active Substance: INSULIN LISPRO
     Indication: PRODUCT USED FOR UNKNOWN INDICATION
     Dosage: 18-24IU, BID
     Route: 065
     Dates: start: 2004

REACTIONS (4)
  - Tongue haemorrhage [Recovered/Resolved]
  - Mouth haemorrhage [Recovered/Resolved]
  - Tongue biting [Unknown]
  - Mouth injury [Unknown]
